FAERS Safety Report 4925897-8 (Version None)
Quarter: 2006Q1

REPORT INFORMATION
  Report Type: 
  Country: None (occurrence: None)
  Receive Date: 20060228
  Receipt Date: 20050411
  Transmission Date: 20060701
  Serious: Yes (Other)
  Sender: FDA-Public Use
  Company Number: US-GLAXOSMITHKLINE-A0553610A

PATIENT
  Age: 42 Year
  Sex: Female

DRUGS (10)
  1. LAMICTAL [Suspect]
     Indication: BIPOLAR DISORDER
     Dosage: 25MG PER DAY
     Route: 048
     Dates: start: 20050406, end: 20050408
  2. WELLBUTRIN SR [Concomitant]
  3. ASPIRIN [Concomitant]
  4. SYNTHROID [Concomitant]
  5. TRILEPTAL [Concomitant]
  6. SEROQUEL [Concomitant]
  7. SPIRONOLACTONE [Concomitant]
  8. TRAZODONE [Concomitant]
  9. EFFEXOR [Concomitant]
  10. TYLENOL (CAPLET) [Concomitant]

REACTIONS (2)
  - RASH ERYTHEMATOUS [None]
  - RASH PRURITIC [None]
